FAERS Safety Report 13761206 (Version 5)
Quarter: 2017Q4

REPORT INFORMATION
  Report Type: Spontaneous
  Country: US (occurrence: US)
  Receive Date: 20170717
  Receipt Date: 20171117
  Transmission Date: 20180320
  Serious: Yes (Death, Hospitalization)
  Sender: FDA-Public Use
  Company Number: US-ACTELION-A-NJ2017-156682

PATIENT
  Age: 82 Year
  Sex: Female
  Weight: 89.34 kg

DRUGS (3)
  1. LIPITOR [Concomitant]
     Active Substance: ATORVASTATIN CALCIUM
  2. TRACLEER [Suspect]
     Active Substance: BOSENTAN
     Indication: PULMONARY ARTERIAL HYPERTENSION
     Dosage: 125 MG, BID
     Route: 048
  3. SINGULAIR [Concomitant]
     Active Substance: MONTELUKAST SODIUM

REACTIONS (11)
  - Cystitis [Unknown]
  - Dementia [Unknown]
  - Pulmonary arterial hypertension [Unknown]
  - Pneumonia [Unknown]
  - Mental impairment [Unknown]
  - Weight decreased [Unknown]
  - Dyspnoea [Unknown]
  - Death [Fatal]
  - Mental disorder [Unknown]
  - Alopecia [Unknown]
  - Urinary tract infection [Unknown]

NARRATIVE: CASE EVENT DATE: 20171103
